FAERS Safety Report 18741941 (Version 2)
Quarter: 2021Q1

REPORT INFORMATION
  Report Type: Report from Study
  Country: US (occurrence: US)
  Receive Date: 20210114
  Receipt Date: 20210129
  Transmission Date: 20210419
  Serious: Yes (Other)
  Sender: FDA-Public Use
  Company Number: US-JAZZ-2017-US-003371

PATIENT
  Age: 25 Year
  Sex: Female

DRUGS (3)
  1. XYREM [Suspect]
     Active Substance: SODIUM OXYBATE
     Indication: CATAPLEXY
     Dosage: 2.25 GRAM, BID
     Route: 048
     Dates: start: 20170310, end: 20170312
  2. MODAFINIL. [Concomitant]
     Active Substance: MODAFINIL
  3. XYREM [Suspect]
     Active Substance: SODIUM OXYBATE
     Indication: NARCOLEPSY
     Dosage: 2.25 G, BID
     Route: 048
     Dates: start: 20170310

REACTIONS (12)
  - Chills [Not Recovered/Not Resolved]
  - Nausea [Not Recovered/Not Resolved]
  - Dizziness [Unknown]
  - Diarrhoea [Recovered/Resolved]
  - Headache [Unknown]
  - Hypoaesthesia [Unknown]
  - Seizure [Unknown]
  - Enuresis [Recovered/Resolved]
  - Product storage error [Unknown]
  - Paraesthesia [Unknown]
  - Incontinence [Unknown]
  - Retching [Unknown]

NARRATIVE: CASE EVENT DATE: 20170310
